FAERS Safety Report 7510730-0 (Version None)
Quarter: 2011Q2

REPORT INFORMATION
  Report Type: 
  Country: None (occurrence: None)
  Receive Date: 20110530
  Receipt Date: 20110523
  Transmission Date: 20111010
  Serious: Yes (Death)
  Sender: FDA-Public Use
  Company Number: PHHY2010US67174

PATIENT
  Sex: Male

DRUGS (7)
  1. HYDROCODONE BITARTRATE [Concomitant]
  2. NYSTATIN [Concomitant]
  3. TAXOL [Concomitant]
  4. ZOMETA [Suspect]
     Indication: BONE NEOPLASM MALIGNANT
     Dosage: 4 MG, QMO
     Route: 042
  5. CARBOPLATIN [Concomitant]
  6. ACETAMINOPHEN [Concomitant]
  7. XANAX [Concomitant]
     Indication: ANXIETY
     Dosage: O.J MG ONE P.O. Q.G HOURS P.R,N,
     Dates: start: 20100628

REACTIONS (10)
  - WEIGHT DECREASED [None]
  - NEOPLASM MALIGNANT [None]
  - FATIGUE [None]
  - DYSPNOEA [None]
  - LUNG NEOPLASM MALIGNANT [None]
  - OEDEMA PERIPHERAL [None]
  - MALAISE [None]
  - MUSCULOSKELETAL DISCOMFORT [None]
  - DECREASED APPETITE [None]
  - LUNG ADENOCARCINOMA [None]
